FAERS Safety Report 4845669-2 (Version None)
Quarter: 2005Q4

REPORT INFORMATION
  Report Type: 
  Country: None (occurrence: None)
  Receive Date: 20051206
  Receipt Date: 20051101
  Transmission Date: 20060501
  Serious: No
  Sender: FDA-Public Use
  Company Number: FI-BOEHRINGER INGELHEIM PHARMACEUTICALS, INC.-2005-BP-19918YA

PATIENT
  Age: 79 Year
  Sex: Male

DRUGS (15)
  1. TAMSULOSIN HCL [Suspect]
     Route: 048
  2. ASPIRIN [Concomitant]
  3. BECLOMETHASONE DIPROPIONATE [Concomitant]
  4. DIGOXIN [Concomitant]
  5. DISOPROFOL [Concomitant]
  6. ESOMEPRAZOLE [Concomitant]
  7. FUROSEMIDE [Concomitant]
  8. ISOSORBIDE [Concomitant]
  9. POTASSIUM CHLORIDE [Concomitant]
  10. PHENYLEPHRINE HYDROCHLORIDE [Concomitant]
     Indication: MYDRIASIS
     Route: 031
  11. TROPICAMIDE [Concomitant]
     Indication: MYDRIASIS
     Route: 031
  12. SALMETEROL [Concomitant]
  13. SALBUTAMOL [Concomitant]
  14. THEOPHYLLINE [Concomitant]
  15. GLYCERYL TRINITRATE [Concomitant]

REACTIONS (1)
  - IRIDOCELE [None]
